FAERS Safety Report 4598134-4 (Version None)
Quarter: 2005Q1

REPORT INFORMATION
  Report Type: 
  Country: None (occurrence: None)
  Receive Date: 20050301
  Receipt Date: 20050301
  Transmission Date: 20050727
  Serious: Yes (Other)
  Sender: FDA-Public Use
  Company Number: None

PATIENT
  Sex: Female

DRUGS (1)
  1. DEXTROSE [Suspect]

REACTIONS (6)
  - ANAPHYLACTIC REACTION [None]
  - DYSPNOEA [None]
  - LACRIMATION INCREASED [None]
  - PRURITUS [None]
  - RASH [None]
  - REACTION TO MEDICAL AGENT PRESERVATIVES [None]
